FAERS Safety Report 8908334 (Version 1)
Quarter: 2012Q4

REPORT INFORMATION
  Report Type: 
  Country: US (occurrence: US)
  Receive Date: 20121114
  Receipt Date: 20121114
  Transmission Date: 20130627
  Serious: Yes (Hospitalization, Other)
  Sender: FDA-Public Use
  Company Number: CHPA2012US023323

PATIENT
  Age: 81 Year

DRUGS (1)
  1. TRIAMINIC CHEST AND NASAL CONGESTION [Suspect]
     Indication: COUGH
     Dosage: 1 TSP, four times daily
     Route: 048
     Dates: end: 2010

REACTIONS (6)
  - Cardiac disorder [Recovered/Resolved]
  - Type 2 diabetes mellitus [Not Recovered/Not Resolved]
  - Blood cholesterol increased [Not Recovered/Not Resolved]
  - Urticaria [Recovered/Resolved]
  - Rash [Recovered/Resolved]
  - Glucose tolerance impaired [Unknown]
